FAERS Safety Report 7743470-3 (Version None)
Quarter: 2011Q3

REPORT INFORMATION
  Report Type: 
  Country: None (occurrence: None)
  Receive Date: 20110912
  Receipt Date: 20110906
  Transmission Date: 20111222
  Serious: Yes (Hospitalization, Other)
  Sender: FDA-Public Use
  Company Number: HR-ABBOTT-11P-216-0852259-00

PATIENT
  Age: 61 Year
  Sex: Female
  Weight: 83 kg

DRUGS (3)
  1. METOTREKSAT [Concomitant]
     Indication: RHEUMATOID ARTHRITIS
     Dosage: 50MG/2ML; 20MG DAILY
  2. MEDROL [Concomitant]
     Indication: RHEUMATOID ARTHRITIS
     Route: 048
  3. HUMIRA [Suspect]
     Indication: RHEUMATOID ARTHRITIS
     Route: 058
     Dates: start: 20070201, end: 20110802

REACTIONS (2)
  - ARTHROPOD BITE [None]
  - BORRELIA INFECTION [None]
